FAERS Safety Report 4830680-8 (Version None)
Quarter: 2005Q4

REPORT INFORMATION
  Report Type: 
  Country: None (occurrence: None)
  Receive Date: 20051114
  Receipt Date: 20051101
  Transmission Date: 20060501
  Serious: Yes (Hospitalization)
  Sender: FDA-Public Use
  Company Number: HQWYE353902NOV05

PATIENT
  Age: 44 Year
  Sex: Female

DRUGS (1)
  1. MYLOTARG [Suspect]
     Indication: ACUTE MYELOID LEUKAEMIA RECURRENT
     Dosage: A SINGLE DOSE, INTRAVENOUS DRIP
     Route: 041
     Dates: start: 20050928, end: 20050928

REACTIONS (6)
  - BLOOD ALKALINE PHOSPHATASE INCREASED [None]
  - CHILLS [None]
  - FIBRIN DEGRADATION PRODUCTS INCREASED [None]
  - NEUTROPHIL COUNT DECREASED [None]
  - PROCTALGIA [None]
  - PYREXIA [None]
